FAERS Safety Report 5117397-X (Version None)
Quarter: 2006Q3

REPORT INFORMATION
  Report Type: 
  Country: None (occurrence: None)
  Receive Date: 20060926
  Receipt Date: 20060908
  Transmission Date: 20061208
  Serious: Yes (Other)
  Sender: FDA-Public Use
  Company Number: USA050290195

PATIENT
  Age: 80 Year
  Sex: Female

DRUGS (4)
  1. FORTEO [Suspect]
     Indication: OSTEOPOROSIS
     Dates: start: 20040101, end: 20040101
  2. MILK OF MAGNESIA (MILK OF MAGNESIA) [Concomitant]
  3. QUININE SULFATE [Concomitant]
  4. FORTEO PEN (FORTEO PEN), PEN DISPOSABLE [Concomitant]

REACTIONS (8)
  - ABDOMINAL PAIN UPPER [None]
  - DYSPEPSIA [None]
  - GASTRIC DISORDER [None]
  - GINGIVAL DISCOLOURATION [None]
  - GINGIVAL RECESSION [None]
  - ILL-DEFINED DISORDER [None]
  - LUNG NEOPLASM MALIGNANT [None]
  - MUSCLE SPASMS [None]
